FAERS Safety Report 6537517-X (Version None)
Quarter: 2010Q1

REPORT INFORMATION
  Report Type: 
  Country: None (occurrence: None)
  Receive Date: 20100114
  Receipt Date: 20100108
  Transmission Date: 20100710
  Serious: Yes (Hospitalization)
  Sender: FDA-Public Use
  Company Number: PHHO2010IT00600

PATIENT
  Sex: Male
  Weight: 74 kg

DRUGS (2)
  1. CERTICAN [Suspect]
     Indication: IMMUNOSUPPRESSION
     Dosage: UNK
     Route: 048
     Dates: start: 20091214
  2. NEORAL [Suspect]
     Indication: IMMUNOSUPPRESSION
     Dosage: UNK
     Route: 048
     Dates: start: 20091214

REACTIONS (2)
  - LYMPHOCELE [None]
  - RENAL IMPAIRMENT [None]
